FAERS Safety Report 9629923 (Version 1)
Quarter: 2013Q4

REPORT INFORMATION
  Report Type: Spontaneous
  Country: PT (occurrence: PT)
  Receive Date: 20131017
  Receipt Date: 20131017
  Transmission Date: 20140711
  Serious: Yes (Other)
  Sender: FDA-Public Use
  Company Number: PHHY2013PT115628

PATIENT
  Age: 67 Year
  Sex: Male
  Weight: 80 kg

DRUGS (3)
  1. ZOMETA [Suspect]
     Indication: METASTASES TO BONE
     Dosage: 4 MG/ 5ML
     Route: 042
     Dates: start: 20080215, end: 20130712
  2. GOSERELIN [Concomitant]
     Dosage: 10.8 MG, Q3MO
  3. DOCETAXEL [Concomitant]
     Dosage: 140 MG, IN CYCLES OF 21 DAYS

REACTIONS (1)
  - Osteomyelitis [Recovering/Resolving]
